FAERS Safety Report 4386729-2 (Version None)
Quarter: 2004Q2

REPORT INFORMATION
  Report Type: 
  Country: None (occurrence: None)
  Receive Date: 20040629
  Receipt Date: 20040624
  Transmission Date: 20050107
  Serious: Yes (Other)
  Sender: FDA-Public Use
  Company Number: GB-MERCK-0406GBR00209

PATIENT
  Age: 37 Year
  Sex: Male
  Weight: 96 kg

DRUGS (1)
  1. ZETIA [Suspect]
     Indication: HYPERLIPIDAEMIA
     Route: 048
     Dates: start: 20031101, end: 20040608

REACTIONS (1)
  - BLOOD CREATINE PHOSPHOKINASE INCREASED [None]
